FAERS Safety Report 16236888 (Version 1)
Quarter: 2019Q2

REPORT INFORMATION
  Report Type: Report from Study
  Country: IT (occurrence: IT)
  Receive Date: 20190425
  Receipt Date: 20190425
  Transmission Date: 20190711
  Serious: Yes (Hospitalization, Other)
  Sender: FDA-Public Use
  Company Number: IT-TEVA-2019-IT-1040689

PATIENT
  Age: 77 Year
  Sex: Female

DRUGS (9)
  1. METFORMIN [Suspect]
     Active Substance: METFORMIN HYDROCHLORIDE
     Indication: TYPE 2 DIABETES MELLITUS
     Dosage: 3000 MILLIGRAM DAILY;
  2. VALSARTAN. [Suspect]
     Active Substance: VALSARTAN
     Route: 065
  3. ASPIRIN. [Concomitant]
     Active Substance: ASPIRIN
  4. AMLODIPINE [Concomitant]
     Active Substance: AMLODIPINE BESYLATE
  5. ESOMEPRAZOLE. [Concomitant]
     Active Substance: ESOMEPRAZOLE MAGNESIUM
  6. SIMVASTATIN. [Concomitant]
     Active Substance: SIMVASTATIN
  7. CLOPIDOGREL [Concomitant]
     Active Substance: CLOPIDOGREL BISULFATE
  8. TORASEMIDE [Concomitant]
     Active Substance: TORSEMIDE
  9. AMIODARONE [Concomitant]
     Active Substance: AMIODARONE

REACTIONS (4)
  - Acute kidney injury [Recovering/Resolving]
  - Toxicity to various agents [Recovering/Resolving]
  - Lactic acidosis [Recovering/Resolving]
  - Product prescribing error [Unknown]
